FAERS Safety Report 21559476 (Version 2)
Quarter: 2022Q4

REPORT INFORMATION
  Report Type: Report from Study
  Country: US (occurrence: US)
  Receive Date: 20221107
  Receipt Date: 20221109
  Transmission Date: 20230112
  Serious: Yes (Hospitalization)
  Sender: FDA-Public Use
  Company Number: US-JNJFOC-20221061847

PATIENT
  Age: 34 Year
  Sex: Male
  Weight: 47.7 kg

DRUGS (4)
  1. EPOPROSTENOL SODIUM [Suspect]
     Active Substance: EPOPROSTENOL SODIUM
     Indication: Pulmonary arterial hypertension
     Route: 042
  2. AMBRISENTAN [Concomitant]
     Active Substance: AMBRISENTAN
  3. LETAIRIS [Concomitant]
     Active Substance: AMBRISENTAN
  4. ADCIRCA [Concomitant]
     Active Substance: TADALAFIL

REACTIONS (3)
  - Device occlusion [Unknown]
  - Device dislocation [Unknown]
  - Product administration interrupted [Unknown]

NARRATIVE: CASE EVENT DATE: 20221027
